FAERS Safety Report 6229952-4 (Version None)
Quarter: 2009Q2

REPORT INFORMATION
  Report Type: 
  Country: None (occurrence: None)
  Receive Date: 20090615
  Receipt Date: 20090612
  Transmission Date: 20091009
  Serious: Yes (Life-Threatening)
  Sender: FDA-Public Use
  Company Number: MX-B.I. PHARMACEUTICALS,INC./RIDGEFIELD-2009-MX-00069MX

PATIENT
  Age: 86 Year
  Sex: Female
  Weight: 75 kg

DRUGS (3)
  1. PRADAXA [Suspect]
     Indication: THROMBOSIS PROPHYLAXIS
     Dosage: NOT REPORTED
     Route: 048
  2. AMLODIPINE [Concomitant]
     Indication: HYPERTENSION
     Dosage: NOT REPORTED
  3. ALENDRONATE [Concomitant]
     Indication: OSTEOPOROSIS
     Dosage: NOT REPORTED

REACTIONS (1)
  - VENOUS THROMBOSIS LIMB [None]
